FAERS Safety Report 4789251-4 (Version None)
Quarter: 2005Q3

REPORT INFORMATION
  Report Type: 
  Country: None (occurrence: None)
  Receive Date: 20050929
  Receipt Date: 20050803
  Transmission Date: 20060218
  Serious: No
  Sender: FDA-Public Use
  Company Number: 05P-163-0307376-00

PATIENT
  Age: 79 Year
  Sex: Female
  Weight: 68.0396 kg

DRUGS (15)
  1. HUMIRA [Suspect]
     Indication: RHEUMATOID ARTHRITIS
     Dosage: 40 MG, 1 IN 2 WK, SUBCUTANEOUS
     Route: 058
     Dates: start: 20050317
  2. METHOTREXATE SODIUM [Concomitant]
  3. LEFLUNOMIDE [Concomitant]
  4. IBUPROFEN [Concomitant]
  5. DARVOCET [Concomitant]
  6. ROSIGLITAZONE MALEATE [Concomitant]
  7. GLUCOPHAGE [Concomitant]
  8. GLIPIZIDE [Concomitant]
  9. ISONIAZID [Concomitant]
  10. B6 [Concomitant]
  11. COUMADIN [Concomitant]
  12. AMLODIPINE BESYLATE [Concomitant]
  13. METOPROLOL TARTRATE [Concomitant]
  14. FERROUS SULFATE TAB [Concomitant]
  15. FOLIC ACID [Concomitant]

REACTIONS (1)
  - DRUG EFFECT DECREASED [None]
